FAERS Safety Report 5340556-8 (Version None)
Quarter: 2007Q2

REPORT INFORMATION
  Report Type: 
  Country: None (occurrence: None)
  Receive Date: 20070531
  Receipt Date: 20070523
  Transmission Date: 20071010
  Serious: Yes (Other)
  Sender: FDA-Public Use
  Company Number: US-PFIZER INC-2007023061

PATIENT
  Sex: Female
  Weight: 79.4 kg

DRUGS (5)
  1. CELEBREX [Suspect]
     Indication: RHEUMATOID ARTHRITIS
  2. OMEPRAZOLE [Suspect]
     Indication: GASTROOESOPHAGEAL REFLUX DISEASE
  3. TOPROL-XL [Concomitant]
  4. L-THYROXIN [Concomitant]
  5. FUROSEMIDE [Concomitant]

REACTIONS (2)
  - DYSPHONIA [None]
  - POLYP [None]
